FAERS Safety Report 9284999 (Version 1)
Quarter: 2013Q2

REPORT INFORMATION
  Report Type: Spontaneous
  Country: ES (occurrence: ES)
  Receive Date: 20130513
  Receipt Date: 20130513
  Transmission Date: 20140414
  Serious: Yes (Other)
  Sender: FDA-Public Use
  Company Number: PHHY2013ES044748

PATIENT
  Age: 49 Year
  Sex: Female

DRUGS (1)
  1. ZOMETA [Suspect]
     Indication: PROPHYLAXIS
     Dosage: 4 MG, UNK
     Route: 042
     Dates: start: 201208

REACTIONS (2)
  - Vitritis [Unknown]
  - Uveitis [Unknown]
